FAERS Safety Report 13187315 (Version 6)
Quarter: 2017Q3

REPORT INFORMATION
  Report Type: Report from Study
  Country: US (occurrence: US)
  Receive Date: 20170206
  Receipt Date: 20170726
  Transmission Date: 20171127
  Serious: Yes (Other)
  Sender: FDA-Public Use
  Company Number: US-AMGEN-USASL2017017975

PATIENT
  Age: 65 Year
  Sex: Female

DRUGS (3)
  1. ENBREL [Suspect]
     Active Substance: ETANERCEPT
     Dosage: 50 MG, QWK
     Route: 065
     Dates: start: 2016
  2. ENBREL [Suspect]
     Active Substance: ETANERCEPT
     Dosage: 50 MG, QWK
     Route: 065
  3. ENBREL [Suspect]
     Active Substance: ETANERCEPT
     Indication: RHEUMATOID ARTHRITIS
     Dosage: 50 MG, QWK
     Route: 065

REACTIONS (14)
  - Dehydration [Unknown]
  - Product storage error [Unknown]
  - Dyspnoea [Unknown]
  - Underdose [Unknown]
  - Nasopharyngitis [Not Recovered/Not Resolved]
  - Injection site vesicles [Unknown]
  - Bedridden [Not Recovered/Not Resolved]
  - Rheumatoid arthritis [Recovering/Resolving]
  - Gait disturbance [Not Recovered/Not Resolved]
  - Drug dose omission [Unknown]
  - Weight increased [Not Recovered/Not Resolved]
  - Gait inability [Not Recovered/Not Resolved]
  - Loss of consciousness [Unknown]
  - Pain [Not Recovered/Not Resolved]

NARRATIVE: CASE EVENT DATE: 2016
